FAERS Safety Report 8191252-3 (Version None)
Quarter: 2012Q1

REPORT INFORMATION
  Report Type: 
  Country: None (occurrence: None)
  Receive Date: 20120307
  Receipt Date: 20120224
  Transmission Date: 20120608
  Serious: Yes (Other)
  Sender: FDA-Public Use
  Company Number: US-MYLANLABS-2012S1004287

PATIENT
  Sex: Male

DRUGS (8)
  1. CIPRO [Suspect]
     Indication: COUGH
     Dates: start: 20100509, end: 20100516
  2. CIPRO [Suspect]
     Indication: ANTIBIOTIC PROPHYLAXIS
     Dates: start: 20100509, end: 20100516
  3. CIPROFLOXACIN [Suspect]
     Indication: COUGH
     Dates: start: 20100509, end: 20100516
  4. CIPROFLOXACIN [Suspect]
     Dates: start: 20100524, end: 20100530
  5. CIPRO [Suspect]
     Dates: start: 20100524, end: 20100530
  6. CIPROFLOXACIN [Suspect]
     Indication: ANTIBIOTIC PROPHYLAXIS
     Dates: start: 20100509, end: 20100516
  7. CIPRO [Suspect]
     Dates: start: 20100524, end: 20100530
  8. CIPROFLOXACIN [Suspect]
     Dates: start: 20100524, end: 20100530

REACTIONS (6)
  - ARTHRALGIA [None]
  - MUSCULAR WEAKNESS [None]
  - MUSCLE RUPTURE [None]
  - DYSPNOEA [None]
  - MYALGIA [None]
  - MYOSITIS [None]
